FAERS Safety Report 11430673 (Version 1)
Quarter: 2015Q3

REPORT INFORMATION
  Report Type: Spontaneous
  Country: US (occurrence: US)
  Receive Date: 20150828
  Receipt Date: 20150828
  Transmission Date: 20151125
  Serious: No
  Sender: FDA-Public Use
  Company Number: US-ROCHE-1193373

PATIENT
  Age: 62 Year
  Sex: Male

DRUGS (2)
  1. TELAPREVIR [Concomitant]
     Active Substance: TELAPREVIR
  2. PEGASYS [Suspect]
     Active Substance: PEGINTERFERON ALFA-2A
     Indication: PRODUCT USED FOR UNKNOWN INDICATION
     Route: 065

REACTIONS (2)
  - Dry skin [Unknown]
  - Rash pruritic [Unknown]
